FAERS Safety Report 13039989 (Version 1)
Quarter: 2016Q4

REPORT INFORMATION
  Report Type: Spontaneous
  Country: US (occurrence: US)
  Receive Date: 20161219
  Receipt Date: 20161219
  Transmission Date: 20170207
  Serious: No
  Sender: FDA-Public Use
  Company Number: US-LUNDBECK-DKLU2018864

PATIENT
  Sex: Male

DRUGS (3)
  1. AMIODARONE [Concomitant]
     Active Substance: AMIODARONE
     Indication: PRODUCT USED FOR UNKNOWN INDICATION
     Route: 065
  2. NORTHERA [Suspect]
     Active Substance: DROXIDOPA
     Indication: BLOOD DISORDER
     Dosage: TITRATION SCHEDULE C
     Route: 048
     Dates: start: 201608
  3. NORTHERA [Suspect]
     Active Substance: DROXIDOPA
     Route: 065
     Dates: start: 201608, end: 20160831

REACTIONS (4)
  - Gait disturbance [Unknown]
  - Headache [Unknown]
  - Dysstasia [Unknown]
  - Nervousness [Unknown]
